FAERS Safety Report 7950719-0 (Version None)
Quarter: 2011Q4

REPORT INFORMATION
  Report Type: 
  Country: None (occurrence: None)
  Receive Date: 20111201
  Receipt Date: 20111128
  Transmission Date: 20120403
  Serious: Yes (Other)
  Sender: FDA-Public Use
  Company Number: GB-ACCORD-011405

PATIENT
  Sex: Female

DRUGS (1)
  1. LETROZOLE [Suspect]
     Indication: BREAST CANCER

REACTIONS (6)
  - WRIST FRACTURE [None]
  - SPINAL FRACTURE [None]
  - NEOPLASM PROGRESSION [None]
  - FEMUR FRACTURE [None]
  - BREAST CANCER FEMALE [None]
  - PATHOLOGICAL FRACTURE [None]
